FAERS Safety Report 8914369 (Version 2)
Quarter: 2012Q4

REPORT INFORMATION
  Report Type: 
  Country: US (occurrence: US)
  Receive Date: 20121118
  Receipt Date: 20121214
  Transmission Date: 20130627
  Serious: Yes (Other)
  Sender: FDA-Public Use
  Company Number: US-BRISTOL-MYERS SQUIBB COMPANY-17110222

PATIENT
  Age: 56 Year
  Sex: Female
  Weight: 72.56 kg

DRUGS (5)
  1. ABATACEPT SUBQ INJECTION 125MG/ML [Suspect]
     Indication: RHEUMATOID ARTHRITIS
     Dosage: Last injection :05Nov2012,19Nov12
     Route: 058
  2. SULFASALAZINE [Suspect]
  3. TRAMADOL [Concomitant]
  4. GABAPENTIN [Concomitant]
  5. STEROIDS [Concomitant]

REACTIONS (8)
  - Arthropathy [Recovered/Resolved]
  - Fall [Unknown]
  - Musculoskeletal disorder [Unknown]
  - Drug ineffective [Unknown]
  - Malaise [Unknown]
  - Pain in extremity [Unknown]
  - Weight decreased [Recovering/Resolving]
  - Drug dose omission [Unknown]
